FAERS Safety Report 7090649-2 (Version None)
Quarter: 2010Q4

REPORT INFORMATION
  Report Type: 
  Country: None (occurrence: None)
  Receive Date: 20101109
  Receipt Date: 20090409
  Transmission Date: 20110411
  Serious: No
  Sender: FDA-Public Use
  Company Number: US-KINGPHARMUSA00001-K200900410

PATIENT
  Sex: Female
  Weight: 82.993 kg

DRUGS (3)
  1. FLECTOR [Suspect]
     Indication: BACK PAIN
     Dosage: 1 PATCH, PRN
     Route: 061
     Dates: start: 20090101
  2. SOMA [Concomitant]
  3. LORTAB [Concomitant]

REACTIONS (10)
  - BRADYPHRENIA [None]
  - CLUMSINESS [None]
  - DECREASED APPETITE [None]
  - FALL [None]
  - FEELING ABNORMAL [None]
  - HEAD INJURY [None]
  - IMPAIRED WORK ABILITY [None]
  - LETHARGY [None]
  - RASH [None]
  - THINKING ABNORMAL [None]
